FAERS Safety Report 19615596 (Version 2)
Quarter: 2021Q3

REPORT INFORMATION
  Report Type: Spontaneous
  Country: NL (occurrence: NL)
  Receive Date: 20210727
  Receipt Date: 20210805
  Transmission Date: 20211014
  Serious: Yes (Other)
  Sender: FDA-Public Use
  Company Number: NL-TEVA-2021-NL-1936450

PATIENT
  Age: 69 Year
  Sex: Female

DRUGS (5)
  1. LITHIUM. [Concomitant]
     Active Substance: LITHIUM
     Indication: BIPOLAR DISORDER
     Dosage: 200 MILLIGRAM DAILY;
     Dates: start: 1991
  2. SIMVASTATIN. [Concomitant]
     Active Substance: SIMVASTATIN
     Indication: BLOOD CHOLESTEROL
     Dosage: 20 MILLIGRAM DAILY;
     Dates: start: 2011
  3. LOSARTAN KALIUM PCH TABLET OMHULD 50 MG [Suspect]
     Active Substance: LOSARTAN POTASSIUM
     Dosage: 100 MILLIGRAM DAILY;
     Dates: start: 202105
  4. LOSARTAN KALIUM PCH TABLET OMHULD 50 MG [Suspect]
     Active Substance: LOSARTAN POTASSIUM
     Indication: HYPERTENSION
     Dosage: 50 MILLIGRAM DAILY;
     Dates: start: 20110404, end: 202105
  5. OMEPRAZOLE. [Concomitant]
     Active Substance: OMEPRAZOLE
     Indication: ANTACID THERAPY
     Dosage: 20 MILLIGRAM DAILY;
     Dates: start: 2013

REACTIONS (6)
  - Renal injury [Not Recovered/Not Resolved]
  - Fear [Unknown]
  - Blood pressure increased [Unknown]
  - Bladder cancer [Recovered/Resolved]
  - Chest pain [Unknown]
  - Trismus [Unknown]

NARRATIVE: CASE EVENT DATE: 20121130
